FAERS Safety Report 4847666-X (Version None)
Quarter: 2005Q4

REPORT INFORMATION
  Report Type: 
  Country: None (occurrence: None)
  Receive Date: 20051205
  Receipt Date: 20050825
  Transmission Date: 20060501
  Serious: Yes (Other)
  Sender: FDA-Public Use
  Company Number: 2005-CZ-00433

PATIENT
  Age: 76 Year
  Sex: Female

DRUGS (5)
  1. PREDNISOLONE TAB [Suspect]
     Dosage: 40 MG, ORAL
     Route: 048
     Dates: start: 20050212
  2. LEVOFLOXACIN [Suspect]
     Indication: LOWER RESPIRATORY TRACT INFECTION
     Dosage: 500 MG, ORAL
     Route: 048
     Dates: start: 20050211, end: 20050218
  3. LEVOTHYROXINE SODIUM [Concomitant]
  4. ALENDRONIC ACID [Concomitant]
  5. PREDNISOLONE [Concomitant]

REACTIONS (1)
  - TENDON RUPTURE [None]
